FAERS Safety Report 25720364 (Version 3)
Quarter: 2025Q3

REPORT INFORMATION
  Report Type: Report from Study
  Country: US (occurrence: US)
  Receive Date: 20250825
  Receipt Date: 20250926
  Transmission Date: 20251020
  Serious: Yes (Other)
  Sender: ACADIA PHARMACEUTICALS
  Company Number: US-ACADIA PHARMACEUTICALS INC.-ACA-2025-PIM-009448

PATIENT
  Age: 76 Year
  Sex: Male

DRUGS (14)
  1. NUPLAZID [Suspect]
     Active Substance: PIMAVANSERIN TARTRATE
     Indication: Parkinson^s disease psychosis
     Dosage: 34 MILLIGRAM, QD
     Route: 048
     Dates: start: 20250813, end: 20250827
  2. NUPLAZID [Suspect]
     Active Substance: PIMAVANSERIN TARTRATE
     Indication: Psychotic disorder due to a general medical condition
     Dosage: 34 MILLIGRAM, QD
     Route: 048
     Dates: start: 20250830
  3. NUPLAZID [Suspect]
     Active Substance: PIMAVANSERIN TARTRATE
     Indication: Hallucination
  4. CARBIDOPA\LEVODOPA [Concomitant]
     Active Substance: CARBIDOPA\LEVODOPA
  5. CLONAZEPAM [Concomitant]
     Active Substance: CLONAZEPAM
  6. CLONAZEPAM [Concomitant]
     Active Substance: CLONAZEPAM
  7. FINASTERIDE [Concomitant]
     Active Substance: FINASTERIDE
  8. FINASTERIDE [Concomitant]
     Active Substance: FINASTERIDE
  9. FLUDROCORTISONE [Concomitant]
     Active Substance: FLUDROCORTISONE
  10. FLUOXETINE [Concomitant]
     Active Substance: FLUOXETINE HYDROCHLORIDE
  11. MIDODRINE [Concomitant]
     Active Substance: MIDODRINE
  12. MIDODRINE [Concomitant]
     Active Substance: MIDODRINE
  13. PANTOPRAZOLE [Concomitant]
     Active Substance: PANTOPRAZOLE
  14. SENNOSIDES [Concomitant]
     Active Substance: SENNOSIDES

REACTIONS (5)
  - Hallucination [Unknown]
  - Delusion [Unknown]
  - Middle insomnia [Unknown]
  - Gait disturbance [Unknown]
  - Product dose omission issue [Unknown]

NARRATIVE: CASE EVENT DATE: 20250813
